FAERS Safety Report 6391514-6 (Version None)
Quarter: 2009Q4

REPORT INFORMATION
  Report Type: 
  Country: None (occurrence: None)
  Receive Date: 20091007
  Receipt Date: 20090923
  Transmission Date: 20100525
  Serious: Yes (Hospitalization)
  Sender: FDA-Public Use
  Company Number: US-PFIZER INC-2009273283

PATIENT
  Age: 56 Year
  Sex: Female
  Weight: 68.027 kg

DRUGS (10)
  1. LIPITOR [Suspect]
  2. INVESTIGATIONAL DRUG [Suspect]
     Indication: ACUTE CORONARY SYNDROME
  3. PLAVIX [Suspect]
  4. SYNTHROID [Concomitant]
     Dosage: UNK
     Dates: start: 20090801
  5. METOPROLOL [Concomitant]
     Dosage: UNK
     Dates: start: 20090731
  6. PNEUMOVAX 23 [Concomitant]
     Dosage: UNK
     Dates: start: 20090731, end: 20090731
  7. BENADRYL [Concomitant]
     Dosage: UNK
     Dates: start: 20090730, end: 20090730
  8. DILAUDID [Concomitant]
     Dosage: UNK
     Dates: start: 20090730, end: 20090730
  9. HEPARIN SODIUM [Concomitant]
  10. NITROGLYCERIN [Concomitant]

REACTIONS (1)
  - THROMBOCYTOPENIA [None]
